FAERS Safety Report 8540288-9 (Version None)
Quarter: 2012Q2

REPORT INFORMATION
  Report Type: 
  Country: None (occurrence: None)
  Receive Date: 20120412
  Receipt Date: 20090813
  Transmission Date: 20120825
  Serious: Yes (Other)
  Sender: FDA-Public Use
  Company Number: PHEH2009US07715

PATIENT
  Age: 20 Year
  Sex: Male
  Weight: 99.8 kg

DRUGS (4)
  1. CLOZAPINE [Suspect]
  2. ABILIFY [Concomitant]
  3. CLOZARIL [Suspect]
     Dates: start: 20060901
  4. LORAZEPAM [Concomitant]

REACTIONS (10)
  - ACTIVITIES OF DAILY LIVING IMPAIRED [None]
  - FOOD CRAVING [None]
  - HYPERPHAGIA [None]
  - OBESITY [None]
  - INAPPROPRIATE AFFECT [None]
  - DISTURBANCE IN ATTENTION [None]
  - FATIGUE [None]
  - CONFUSIONAL STATE [None]
  - HUNGER [None]
  - TREMOR [None]
